FAERS Safety Report 9390819 (Version 1)
Quarter: 2013Q3

REPORT INFORMATION
  Report Type: Spontaneous
  Country: JP (occurrence: JP)
  Receive Date: 20130709
  Receipt Date: 20130709
  Transmission Date: 20140515
  Serious: Yes (Hospitalization)
  Sender: FDA-Public Use
  Company Number: JP-BAYER-2013-076617

PATIENT
  Age: 60 Year
  Sex: Male
  Weight: 66 kg

DRUGS (4)
  1. EOB PRIMOVIST [Suspect]
     Indication: NUCLEAR MAGNETIC RESONANCE IMAGING
     Dosage: 10 ML, ONCE
     Route: 042
     Dates: start: 20130607, end: 20130607
  2. EOB PRIMOVIST [Suspect]
     Indication: COLON CANCER METASTATIC
  3. EOB PRIMOVIST [Suspect]
     Indication: METASTASES TO LIVER
  4. LENDORMIN [Concomitant]
     Indication: INSOMNIA
     Dosage: 0.25 MG, QD
     Route: 048
     Dates: start: 20130605

REACTIONS (4)
  - Urticaria [Recovered/Resolved with Sequelae]
  - Pyrexia [Recovered/Resolved]
  - Arthralgia [None]
  - Erythema [None]
